FAERS Safety Report 24875029 (Version 1)
Quarter: 2025Q1

REPORT INFORMATION
  Report Type: Spontaneous
  Country: JP (occurrence: JP)
  Receive Date: 20250122
  Receipt Date: 20250122
  Transmission Date: 20250409
  Serious: Yes (Death, Other)
  Sender: BRISTOL-MYERS SQUIBB COMPANY
  Company Number: JP-BRISTOL-MYERS SQUIBB COMPANY-2025-008705

PATIENT
  Age: 74 Year
  Sex: Male

DRUGS (1)
  1. REBLOZYL [Suspect]
     Active Substance: LUSPATERCEPT-AAMT
     Indication: Anaemia of malignant disease
     Dosage: NUMBER OF DOSES: 2 DOSES
     Route: 058
     Dates: start: 20241118, end: 20241209

REACTIONS (1)
  - Sudden death [Fatal]
